FAERS Safety Report 12038304 (Version 1)
Quarter: 2016Q1

REPORT INFORMATION
  Report Type: Spontaneous
  Country: GB (occurrence: GB)
  Receive Date: 20160208
  Receipt Date: 20160208
  Transmission Date: 20160526
  Serious: Yes (Hospitalization)
  Sender: FDA-Public Use
  Company Number: GB-ACTAVIS-2016-02084

PATIENT
  Age: 62 Year
  Sex: Female

DRUGS (1)
  1. LETROZOLE (UNKNOWN) [Suspect]
     Active Substance: LETROZOLE
     Indication: PRODUCT USED FOR UNKNOWN INDICATION
     Dosage: 2.5 MG, DAILY
     Route: 048

REACTIONS (1)
  - Pulmonary embolism [Recovered/Resolved]
